FAERS Safety Report 10443870 (Version 1)
Quarter: 2014Q3

REPORT INFORMATION
  Report Type: Spontaneous
  Country: DE (occurrence: DE)
  Receive Date: 20140910
  Receipt Date: 20140910
  Transmission Date: 20150326
  Serious: Yes (Congenital Anomaly, Other)
  Sender: FDA-Public Use
  Company Number: DE-AUROBINDO-AUR-APL-2014-09277

PATIENT
  Age: 1 Day
  Sex: Male
  Weight: .89 kg

DRUGS (6)
  1. CLEXANE [Concomitant]
     Active Substance: ENOXAPARIN SODIUM
     Indication: THROMBOSIS
     Dosage: 40 MG, ONCE A DAY
     Route: 064
     Dates: start: 20121118, end: 20130628
  2. ASPIRIN. [Concomitant]
     Active Substance: ASPIRIN
     Indication: THROMBOSIS PROPHYLAXIS
     Dosage: 100 MG, ONCE A DAY
     Route: 064
     Dates: start: 20130412, end: 20130628
  3. FAMPYRA [Suspect]
     Active Substance: DALFAMPRIDINE
     Indication: MULTIPLE SCLEROSIS
     Dosage: 10 MG, ONCE A DAY
     Route: 064
     Dates: start: 20121118, end: 20121210
  4. REMERGIL [Suspect]
     Active Substance: MIRTAZAPINE
     Indication: DEPRESSION
     Dosage: 30 MG, ONCE A DAY
     Route: 064
     Dates: start: 20130226, end: 20130628
  5. GABAPENTIN. [Suspect]
     Active Substance: GABAPENTIN
     Indication: MULTIPLE SCLEROSIS
     Dosage: ^3200 [MG/D (BIS 1200) ]/ UNTIL GW 3+1: 3200MG/D; AGAIN FROM GW 14+2:1200MG/D^]
     Route: 064
     Dates: start: 20121118, end: 20130628
  6. TYSABRI [Suspect]
     Active Substance: NATALIZUMAB
     Indication: MULTIPLE SCLEROSIS
     Dosage: UNK
     Route: 064
     Dates: start: 20121118, end: 20121206

REACTIONS (6)
  - Neonatal respiratory distress syndrome [Recovered/Resolved]
  - Hypospadias [Not Recovered/Not Resolved]
  - Small for dates baby [Recovering/Resolving]
  - Feeding disorder neonatal [Recovered/Resolved]
  - Foetal exposure during pregnancy [Unknown]
  - Atrial septal defect [Unknown]

NARRATIVE: CASE EVENT DATE: 20130628
